FAERS Safety Report 21095289 (Version 1)
Quarter: 2022Q3

REPORT INFORMATION
  Report Type: Spontaneous
  Country: US (occurrence: None)
  Receive Date: 20220717
  Receipt Date: 20220717
  Transmission Date: 20221027
  Serious: Yes (Disabling)
  Sender: FDA-Public Use
  Company Number: None

PATIENT
  Age: 67 Year
  Sex: Female
  Weight: 57.6 kg

DRUGS (3)
  1. CITROMA [Suspect]
     Active Substance: MAGNESIUM CITRATE
     Indication: Colonoscopy
     Dosage: OTHER FREQUENCY : DRANK ALL AT ONCE;?
     Route: 048
     Dates: start: 20220423, end: 20220423
  2. ESTRADIOL [Concomitant]
     Active Substance: ESTRADIOL
  3. calcium citrate once daily for osteopenia [Concomitant]

REACTIONS (3)
  - Diarrhoea [None]
  - Product contamination microbial [None]
  - Malaise [None]

NARRATIVE: CASE EVENT DATE: 20220425
